FAERS Safety Report 10045680 (Version 1)
Quarter: 2014Q1

REPORT INFORMATION
  Report Type: Spontaneous
  Country: US (occurrence: None)
  Receive Date: 20140306
  Receipt Date: 20140306
  Transmission Date: 20141002
  Serious: Yes (Hospitalization)
  Sender: FDA-Public Use
  Company Number: 163-21880-13054969

PATIENT
  Age: 65 Year
  Sex: Male

DRUGS (8)
  1. REVLIMID (LENALIDOMIDE) (25 MILLIGRAM, CAPSULES) [Suspect]
     Indication: PLASMA CELL MYELOMA
     Dosage: 1 IN 1 D
     Route: 048
     Dates: start: 201205
  2. NEUPOGEN (FILGRASTIM) [Concomitant]
  3. LYRICA (PREGABALIN) [Concomitant]
  4. ACYCLOVIR (ACICLOVIR) [Concomitant]
  5. OMEPRAZOLE [Concomitant]
  6. DIGOXIN [Concomitant]
  7. POLYETHYLENE  GLYCOL 3350 AND ELECTROLYTES (MACROGOL) [Concomitant]
  8. BISACODYL [Concomitant]

REACTIONS (1)
  - Thrombosis [None]
